FAERS Safety Report 25874985 (Version 1)
Quarter: 2025Q4

REPORT INFORMATION
  Report Type: Other
  Country: US (occurrence: US)
  Receive Date: 20251002
  Receipt Date: 20251002
  Transmission Date: 20260118
  Serious: Yes (Other)
  Sender: INTERCEPT PHARMACEUTICALS
  Company Number: US-INTERCEPT-PM2023002217

PATIENT
  Age: 70 Year
  Sex: Female

DRUGS (8)
  1. OCALIVA [Suspect]
     Active Substance: OBETICHOLIC ACID
     Indication: Primary biliary cholangitis
     Dosage: 5 MILLIGRAM, QD
     Route: 048
     Dates: start: 20231228
  2. OCALIVA [Suspect]
     Active Substance: OBETICHOLIC ACID
     Dosage: 2.5 MILLIGRAM, QD
     Route: 048
     Dates: end: 20240110
  3. OCALIVA [Suspect]
     Active Substance: OBETICHOLIC ACID
     Dosage: 2.5 MILLIGRAM, QD
     Route: 048
     Dates: start: 20240112, end: 2024
  4. OCALIVA [Suspect]
     Active Substance: OBETICHOLIC ACID
     Dosage: 2.5 MILLIGRAM, BID
     Route: 048
     Dates: start: 20240728
  5. OCALIVA [Suspect]
     Active Substance: OBETICHOLIC ACID
     Dosage: 2.5 MILLIGRAM, BID
     Route: 048
  6. URSODIOL [Concomitant]
     Active Substance: URSODIOL
  7. OMEPRAZOLE [Concomitant]
     Active Substance: OMEPRAZOLE
     Indication: Gastrooesophageal reflux disease
  8. HYDROXYCHLOROQUINE [Concomitant]
     Active Substance: HYDROXYCHLOROQUINE

REACTIONS (26)
  - Atrial fibrillation [Recovering/Resolving]
  - Oesophageal candidiasis [Recovered/Resolved]
  - Musculoskeletal chest pain [Recovered/Resolved]
  - Gastrooesophageal reflux disease [Recovered/Resolved]
  - Diarrhoea [Recovered/Resolved]
  - Pancreatic cyst [Not Recovered/Not Resolved]
  - Hair disorder [Not Recovered/Not Resolved]
  - Vitamin B12 increased [Unknown]
  - Vitamin D increased [Not Recovered/Not Resolved]
  - Dehydration [Recovering/Resolving]
  - Myalgia [Not Recovered/Not Resolved]
  - Electrolyte imbalance [Recovering/Resolving]
  - Pancreatic mass [Not Recovered/Not Resolved]
  - Laryngitis [Unknown]
  - Gastroenteritis viral [Recovered/Resolved]
  - Back pain [Recovered/Resolved]
  - Asthenia [Unknown]
  - Abdominal pain upper [Recovering/Resolving]
  - Palpitations [Recovered/Resolved]
  - Arthralgia [Not Recovered/Not Resolved]
  - Fatigue [Not Recovered/Not Resolved]
  - Pruritus [Recovered/Resolved]
  - Constipation [Recovering/Resolving]
  - Wrong technique in product usage process [Not Recovered/Not Resolved]
  - Intentional dose omission [Recovered/Resolved]
  - Product administration error [Not Recovered/Not Resolved]

NARRATIVE: CASE EVENT DATE: 20231228
